FAERS Safety Report 10262831 (Version 2)
Quarter: 2014Q2

REPORT INFORMATION
  Report Type: Report from Study
  Country: US (occurrence: US)
  Receive Date: 20140626
  Receipt Date: 20140626
  Transmission Date: 20141212
  Serious: Yes (Death)
  Sender: FDA-Public Use
  Company Number: US-MYLANLABS-2013S1018338

PATIENT
  Age: 56 Year
  Sex: Female
  Weight: 91.63 kg

DRUGS (9)
  1. CLOZAPINE TABLETS [Suspect]
     Route: 048
     Dates: start: 201107, end: 201308
  2. CLOZAPINE TABLETS [Suspect]
     Route: 048
     Dates: start: 201107, end: 201308
  3. OXYBUTYNIN [Concomitant]
     Route: 048
     Dates: end: 201308
  4. RISPERIDONE [Concomitant]
     Route: 048
     Dates: end: 201308
  5. OMEPRAZOLE [Concomitant]
     Route: 048
     Dates: end: 201308
  6. LITHIUM CARBONATE EXTENDED-RELEASE TABLETS USP [Concomitant]
     Route: 048
     Dates: end: 201308
  7. DOCUSATE [Concomitant]
     Route: 048
     Dates: end: 201308
  8. VERAPAMIL [Concomitant]
     Route: 048
     Dates: end: 201308
  9. DEPAKOTE [Concomitant]
     Dosage: EXTENDED RELEASE
     Route: 048
     Dates: end: 201308

REACTIONS (1)
  - Death [Fatal]
